FAERS Safety Report 15557891 (Version 1)
Quarter: 2018Q4

REPORT INFORMATION
  Report Type: Spontaneous
  Country: CO (occurrence: CO)
  Receive Date: 20181027
  Receipt Date: 20181027
  Transmission Date: 20190205
  Serious: Yes (Disabling)
  Sender: FDA-Public Use
  Company Number: CO-009507513-1809COL006286

PATIENT
  Age: 27 Year
  Sex: Female
  Weight: 71 kg

DRUGS (2)
  1. IMPLANON [Suspect]
     Active Substance: ETONOGESTREL
     Indication: CONTRACEPTION
     Dosage: 1 ROD, UNK (SINGLE DOSE)
     Route: 059
     Dates: start: 20180801, end: 20180911
  2. IMPLANON [Suspect]
     Active Substance: ETONOGESTREL
     Dosage: 1 ROD, UNK (RIGHT ARM)
     Route: 059
     Dates: start: 20180923

REACTIONS (8)
  - Implant site erythema [Recovered/Resolved]
  - Pain in extremity [Recovered/Resolved]
  - Implant site pruritus [Recovered/Resolved]
  - Implant site pain [Recovered/Resolved]
  - Device deployment issue [Recovered/Resolved]
  - Mobility decreased [Recovered/Resolved]
  - Implant site infection [Recovered/Resolved]
  - Implant site discharge [Recovered/Resolved]

NARRATIVE: CASE EVENT DATE: 20180801
